FAERS Safety Report 5175312-7 (Version None)
Quarter: 2006Q4

REPORT INFORMATION
  Report Type: 
  Country: None (occurrence: None)
  Receive Date: 20061212
  Receipt Date: 20061212
  Transmission Date: 20070319
  Serious: Yes (Life-Threatening, Hospitalization)
  Sender: FDA-Public Use
  Company Number: None

PATIENT
  Age: 79 Year
  Sex: Male
  Weight: 113.9 kg

DRUGS (1)
  1. CLINDAMYCIN [Suspect]
     Indication: PROPHYLAXIS
     Dosage: 600MG, 600 MG P, ORAL
     Route: 048
     Dates: start: 20060926, end: 20060926

REACTIONS (4)
  - NAUSEA [None]
  - RASH [None]
  - URTICARIA [None]
  - VOMITING [None]
